FAERS Safety Report 11031074 (Version 1)
Quarter: 2015Q2

REPORT INFORMATION
  Report Type: Spontaneous
  Country: US (occurrence: US)
  Receive Date: 20150415
  Receipt Date: 20150415
  Transmission Date: 20150821
  Serious: No
  Sender: FDA-Public Use
  Company Number: US-ASTRAZENECA-2015SE13110

PATIENT
  Age: 62 Year
  Sex: Female

DRUGS (3)
  1. NO DRUG NAME [Concomitant]
     Indication: HYPERTENSION
  2. PRILOSEC OTC [Suspect]
     Active Substance: OMEPRAZOLE MAGNESIUM
     Indication: GASTROOESOPHAGEAL REFLUX DISEASE
     Route: 048
     Dates: start: 20150208
  3. NO DRUG NAME [Concomitant]
     Indication: DIABETES MELLITUS

REACTIONS (8)
  - Diarrhoea [Recovered/Resolved]
  - Product use issue [Unknown]
  - Dizziness [Unknown]
  - Headache [Unknown]
  - Fatigue [Unknown]
  - Asthenia [Recovered/Resolved]
  - Somnolence [Recovered/Resolved]
  - Photophobia [Unknown]
